FAERS Safety Report 15464849 (Version 1)
Quarter: 2018Q4

REPORT INFORMATION
  Report Type: Spontaneous
  Country: US (occurrence: US)
  Receive Date: 20181004
  Receipt Date: 20181004
  Transmission Date: 20190204
  Serious: No
  Sender: FDA-Public Use
  Company Number: US-TARO-2018TAR00563

PATIENT
  Age: 73 Year
  Sex: Female
  Weight: 52.61 kg

DRUGS (1)
  1. LIDOCAINE OINTMENT USP 5% TUBE (UNFLAVORED) [Suspect]
     Active Substance: LIDOCAINE
     Indication: PAIN
     Dosage: A SMALL AMOUNT, UNK
     Route: 061
     Dates: start: 20180705, end: 20180705

REACTIONS (2)
  - Product use complaint [Recovered/Resolved]
  - Pain [Recovered/Resolved]

NARRATIVE: CASE EVENT DATE: 20180705
